FAERS Safety Report 10551237 (Version 1)
Quarter: 2014Q4

REPORT INFORMATION
  Report Type: Spontaneous
  Country: US (occurrence: None)
  Receive Date: 20141028
  Receipt Date: 20141028
  Transmission Date: 20150529
  Serious: No
  Sender: FDA-Public Use
  Company Number: None

PATIENT
  Age: 61 Year
  Sex: Female

DRUGS (12)
  1. HALCION [Concomitant]
     Active Substance: TRIAZOLAM
  2. VANCOMYCIN [Suspect]
     Active Substance: VANCOMYCIN
     Indication: STAPHYLOCOCCAL INFECTION
     Dosage: 2X THEN 1X DAILY ?IV
     Route: 042
     Dates: start: 20140713, end: 20140720
  3. O2 [Concomitant]
  4. FISH OIL [Concomitant]
     Active Substance: FISH OIL
  5. MEDROL [Concomitant]
     Active Substance: METHYLPREDNISOLONE
  6. LASIX [Concomitant]
     Active Substance: FUROSEMIDE
  7. TYLENOL [Concomitant]
     Active Substance: ACETAMINOPHEN
  8. SUDAFED [Concomitant]
     Active Substance: PSEUDOEPHEDRINE HYDROCHLORIDE
  9. NATURTHROID [Concomitant]
  10. POTASSIUM [Concomitant]
     Active Substance: POTASSIUM
  11. BENADRYL [Concomitant]
     Active Substance: DIPHENHYDRAMINE HYDROCHLORIDE
  12. ZYRTES [Concomitant]

REACTIONS (2)
  - Rash [None]
  - Urticaria [None]

NARRATIVE: CASE EVENT DATE: 20140713
